FAERS Safety Report 5827783-8 (Version None)
Quarter: 2008Q3

REPORT INFORMATION
  Report Type: 
  Country: None (occurrence: None)
  Receive Date: 20080730
  Receipt Date: 20080721
  Transmission Date: 20090109
  Serious: Yes (Hospitalization)
  Sender: FDA-Public Use
  Company Number: US-GENENTECH-264884

PATIENT
  Sex: Male

DRUGS (4)
  1. RAPTIVA [Suspect]
     Indication: PSORIASIS
     Dosage: 90 MG, 1/WEEK
     Route: 058
  2. LIALDA [Concomitant]
     Indication: DRUG USE FOR UNKNOWN INDICATION
  3. PREVACID [Concomitant]
     Indication: DRUG USE FOR UNKNOWN INDICATION
  4. OXYCODONE HCL [Concomitant]
     Indication: DRUG USE FOR UNKNOWN INDICATION

REACTIONS (2)
  - ABDOMINAL PAIN [None]
  - PANCREATITIS [None]
